FAERS Safety Report 9433992 (Version 1)
Quarter: 2013Q3

REPORT INFORMATION
  Report Type: Report from Study
  Country: US (occurrence: US)
  Receive Date: 20130801
  Receipt Date: 20130801
  Transmission Date: 20140515
  Serious: Yes (Death)
  Sender: FDA-Public Use
  Company Number: US-ROCHE-1255865

PATIENT
  Sex: Male
  Weight: 65.83 kg

DRUGS (2)
  1. XELODA [Suspect]
     Indication: OESOPHAGEAL CARCINOMA
     Route: 048
     Dates: start: 20130430, end: 20130625
  2. XELODA [Suspect]
     Indication: GASTRIC CANCER

REACTIONS (1)
  - Death [Fatal]
